FAERS Safety Report 5517139-X (Version None)
Quarter: 2007Q4

REPORT INFORMATION
  Report Type: 
  Country: None (occurrence: None)
  Receive Date: 20071114
  Receipt Date: 20071112
  Transmission Date: 20080405
  Serious: Yes (Other)
  Sender: FDA-Public Use
  Company Number: B0492873A

PATIENT
  Age: 21 Year
  Sex: Male
  Weight: 90 kg

DRUGS (8)
  1. FLUTIDE [Suspect]
     Indication: ASTHMA
     Dosage: 100MCG TWICE PER DAY
     Route: 055
     Dates: start: 20000101
  2. NASAL SPRAY [Suspect]
     Route: 045
  3. COR-TYZINE PEDIATRIC NASAL DROPS [Suspect]
     Route: 045
     Dates: end: 20030101
  4. UNKNOWN DRUG [Concomitant]
  5. CELTECT [Concomitant]
     Dosage: 60MG PER DAY
     Route: 048
     Dates: start: 20070301, end: 20070301
  6. MEPTIN [Concomitant]
     Indication: ASTHMA
     Dosage: 100MCG PER DAY
     Route: 048
  7. MEPTIN AIR [Concomitant]
     Indication: ASTHMA
     Dosage: 60MG PER DAY
     Route: 055
     Dates: start: 20050101
  8. THEO-DUR [Concomitant]
     Indication: ASTHMA
     Dosage: 200MG PER DAY
     Route: 048

REACTIONS (4)
  - EPISTAXIS [None]
  - HAEMORRHAGIC DIATHESIS [None]
  - HAEMORRHAGIC DISORDER [None]
  - HEADACHE [None]
